FAERS Safety Report 4283606-2 (Version None)
Quarter: 2004Q1

REPORT INFORMATION
  Report Type: 
  Country: None (occurrence: None)
  Receive Date: 20040129
  Receipt Date: 20040129
  Transmission Date: 20041129
  Serious: Yes (Other)
  Sender: FDA-Public Use
  Company Number: None

PATIENT
  Age: 39 Year
  Sex: Female
  Weight: 91.8 kg

DRUGS (1)
  1. HECCEPTIN (TRASTUZUMAB) [Suspect]
     Indication: INFLAMMATORY CARCINOMA OF THE BREAST
     Dosage: 367 MG X 1 DOSE IV , 184 MG Q WEEK, WEEKLY STARTING 12/3/03
     Route: 042
     Dates: start: 20031203

REACTIONS (2)
  - PRURITUS [None]
  - TRICHORRHEXIS [None]
